FAERS Safety Report 10305500 (Version 2)
Quarter: 2014Q4

REPORT INFORMATION
  Report Type: Spontaneous
  Country: IT (occurrence: IT)
  Receive Date: 20140715
  Receipt Date: 20141017
  Transmission Date: 20150528
  Serious: Yes (Hospitalization)
  Sender: FDA-Public Use
  Company Number: IT-SA-2014SA092857

PATIENT
  Age: 94 Year
  Sex: Female

DRUGS (12)
  1. ENALAPRIL MALEATE. [Suspect]
     Active Substance: ENALAPRIL MALEATE
     Indication: HYPERTENSION
     Route: 048
     Dates: start: 20140101, end: 20140708
  2. CIPROXIN [Suspect]
     Active Substance: CIPROFLOXACIN
     Indication: BRONCHITIS
     Route: 048
     Dates: start: 20140703, end: 20140708
  3. TAVOR [Concomitant]
     Active Substance: LORAZEPAM
  4. DIBASE [Concomitant]
     Active Substance: CHOLECALCIFEROL
  5. LASIX [Suspect]
     Active Substance: FUROSEMIDE
     Indication: CARDIAC FAILURE
     Route: 048
     Dates: start: 20140625, end: 20140708
  6. MIRTAZAPINE. [Concomitant]
     Active Substance: MIRTAZAPINE
     Route: 065
  7. VENITRIN [Concomitant]
     Active Substance: NITROGLYCERIN
  8. FOLINA [Concomitant]
     Active Substance: FOLIC ACID
  9. OMEPRAZOLE. [Concomitant]
     Active Substance: OMEPRAZOLE
  10. SPIRIVA [Concomitant]
     Active Substance: TIOTROPIUM BROMIDE MONOHYDRATE
  11. FLUTICASONE PROPIONATE/SALMETEROL XINAFOATE [Concomitant]
  12. CARDIOASPIRIN [Concomitant]
     Active Substance: ASPIRIN

REACTIONS (4)
  - Vomiting [Recovering/Resolving]
  - Diarrhoea [Recovering/Resolving]
  - Hyponatraemia [Recovering/Resolving]
  - Acute kidney injury [Recovering/Resolving]

NARRATIVE: CASE EVENT DATE: 20140708
